FAERS Safety Report 8799013 (Version 1)
Quarter: 2012Q4

REPORT INFORMATION
  Report Type: Spontaneous
  Country: US (occurrence: None)
  Receive Date: 20120913
  Receipt Date: 20120913
  Transmission Date: 20130627
  Serious: Yes (Hospitalization)
  Sender: FDA-Public Use
  Company Number: DSA_59502_2012

PATIENT
  Age: 17 Year
  Sex: Male

DRUGS (1)
  1. METRONIDAZOLE [Suspect]
     Dosage: 1080 g; Total dose)
     Route: 048

REACTIONS (3)
  - Paraesthesia [None]
  - Dysarthria [None]
  - Coordination abnormal [None]
